FAERS Safety Report 8260146-7 (Version None)
Quarter: 2012Q2

REPORT INFORMATION
  Report Type: 
  Country: None (occurrence: None)
  Receive Date: 20120404
  Receipt Date: 20120329
  Transmission Date: 20120825
  Serious: Yes (Other)
  Sender: FDA-Public Use
  Company Number: US-JNJFOC-20120314998

PATIENT
  Age: 17 Year
  Sex: Female

DRUGS (2)
  1. IBUPROFEN [Suspect]
     Indication: MIGRAINE
     Route: 065
  2. ACETAMINOPHEN/ISOMETHEPTENE/DICHLORALPHENAZONE [Suspect]
     Indication: MIGRAINE
     Route: 065

REACTIONS (1)
  - DRUG ERUPTION [None]
